FAERS Safety Report 22330062 (Version 1)
Quarter: 2023Q2

REPORT INFORMATION
  Report Type: Spontaneous
  Country: US (occurrence: None)
  Receive Date: 20230517
  Receipt Date: 20230517
  Transmission Date: 20230722
  Serious: No
  Sender: FDA-Public Use
  Company Number: US-ROCHE-3215024

PATIENT
  Sex: Female
  Weight: 63.9 kg

DRUGS (8)
  1. ACTEMRA [Suspect]
     Active Substance: TOCILIZUMAB
     Indication: Giant cell arteritis
     Route: 042
     Dates: start: 20211230
  2. METFORMIN [Concomitant]
     Active Substance: METFORMIN HYDROCHLORIDE
     Indication: Diabetes mellitus
  3. ATORVASTATIN [Concomitant]
     Active Substance: ATORVASTATIN
  4. PREDNISONE [Concomitant]
     Active Substance: PREDNISONE
  5. ASPIRIN [Concomitant]
     Active Substance: ASPIRIN
  6. FAMOTIDINE [Concomitant]
     Active Substance: FAMOTIDINE
  7. CALCIUM CARBONATE\CHOLECALCIFEROL [Concomitant]
     Active Substance: CALCIUM CARBONATE\CHOLECALCIFEROL
     Dosage: 600 MG-200UNITS ONCE DAILY
  8. BACTRIM DS [Concomitant]
     Active Substance: SULFAMETHOXAZOLE\TRIMETHOPRIM
     Dosage: 1 TABLET ON MONDAY, WEDNESDAY, FRIDAY

REACTIONS (2)
  - Off label use [Unknown]
  - No adverse event [Unknown]
